FAERS Safety Report 14689498 (Version 2)
Quarter: 2018Q3

REPORT INFORMATION
  Report Type: Spontaneous
  Country: GB (occurrence: GB)
  Receive Date: 20180328
  Receipt Date: 20180806
  Transmission Date: 20181010
  Serious: Yes (Other)
  Sender: FDA-Public Use
  Company Number: GB-TEVA-806546ACC

PATIENT
  Age: 65 Year
  Sex: Male

DRUGS (6)
  1. WARFARIN 0.5 MG TABLETS [Concomitant]
     Active Substance: WARFARIN
     Indication: ANTICOAGULANT THERAPY
     Route: 065
  2. WARFARIN TABLETS 1 MG [Suspect]
     Active Substance: WARFARIN
     Indication: ANTICOAGULANT THERAPY
     Dates: start: 20170601
  3. WARFARIN TABLETS 3 MG [Concomitant]
     Active Substance: WARFARIN
     Indication: ANTICOAGULANT THERAPY
     Dates: start: 20170601
  4. WARFARIN TABLETS 5 MG [Suspect]
     Active Substance: WARFARIN
     Indication: ANTICOAGULANT THERAPY
     Dates: start: 20170601
  5. WARFARIN [Suspect]
     Active Substance: WARFARIN
     Indication: PRODUCT USED FOR UNKNOWN INDICATION
     Route: 048
  6. SUN PHARM IND EUROPE WARFARIN [Suspect]
     Active Substance: WARFARIN
     Indication: PRODUCT USED FOR UNKNOWN INDICATION
     Route: 065
     Dates: start: 1999

REACTIONS (4)
  - Medication error [Recovered/Resolved]
  - Incorrect dose administered [Recovered/Resolved]
  - International normalised ratio fluctuation [Recovered/Resolved]
  - Product packaging confusion [Recovered/Resolved]

NARRATIVE: CASE EVENT DATE: 20170601
